FAERS Safety Report 25948774 (Version 1)
Quarter: 2025Q4

REPORT INFORMATION
  Report Type: Spontaneous
  Country: US (occurrence: US)
  Receive Date: 20251022
  Receipt Date: 20251022
  Transmission Date: 20260118
  Serious: Yes (Other)
  Sender: SANOFI AVENTIS
  Company Number: US-SANOFI-02693102

PATIENT
  Sex: Male

DRUGS (2)
  1. DUPIXENT [Suspect]
     Active Substance: DUPILUMAB
     Indication: Pruritus
     Dosage: UNK, 1X
  2. KEYTRUDA [Concomitant]
     Active Substance: PEMBROLIZUMAB
     Dosage: UNK

REACTIONS (6)
  - Lower respiratory tract infection [Unknown]
  - Respiratory tract congestion [Unknown]
  - Cough [Unknown]
  - Head discomfort [Unknown]
  - Feeling abnormal [Unknown]
  - Product use in unapproved indication [Unknown]
